FAERS Safety Report 6905917-1 (Version None)
Quarter: 2010Q3

REPORT INFORMATION
  Report Type: 
  Country: None (occurrence: None)
  Receive Date: 20100803
  Receipt Date: 20100803
  Transmission Date: 20110219
  Serious: Yes (Hospitalization)
  Sender: FDA-Public Use
  Company Number: None

PATIENT
  Sex: Male
  Weight: 89 kg

DRUGS (6)
  1. CYCLOPHOSPHAMIDE [Suspect]
     Dosage: 2224 MG
  2. DOXORUBICIN HYDROCHLORIDE [Suspect]
     Dosage: 116 MG
  3. ETOPOSIDE [Suspect]
     Dosage: 592 MG
  4. PREDNISONE [Suspect]
     Dosage: 600 MG
  5. RITUXIMAB (MOAB C2B8 ANTI CD20 CHIMERIC) [Suspect]
     Dosage: 772 MG
  6. VINCRISTINE SULFATE [Suspect]
     Dosage: 3.2 MG

REACTIONS (1)
  - PYREXIA [None]
